FAERS Safety Report 6429875-1 (Version None)
Quarter: 2009Q4

REPORT INFORMATION
  Report Type: 
  Country: None (occurrence: None)
  Receive Date: 20091103
  Receipt Date: 20091023
  Transmission Date: 20100525
  Serious: Yes (Death, Life-Threatening, Hospitalization)
  Sender: FDA-Public Use
  Company Number: 2009-04168

PATIENT
  Age: 69 Year
  Sex: Male
  Weight: 70 kg

DRUGS (5)
  1. VELCADE [Suspect]
     Indication: MULTIPLE MYELOMA
     Dosage: UNK, UNK, INTRAVENOUS
     Route: 042
     Dates: start: 20090908, end: 20090929
  2. MELPHALAN [Concomitant]
  3. PREDNISOLONE [Concomitant]
  4. ONDANSETRON [Concomitant]
  5. ACYCLOVIR [Concomitant]

REACTIONS (12)
  - BLADDER TRANSITIONAL CELL CARCINOMA [None]
  - BLOOD CREATININE INCREASED [None]
  - GENERAL PHYSICAL HEALTH DETERIORATION [None]
  - HAEMOGLOBIN DECREASED [None]
  - LOWER GASTROINTESTINAL HAEMORRHAGE [None]
  - METASTASES TO BONE [None]
  - METASTASES TO LIVER [None]
  - PNEUMONIA [None]
  - RECTAL HAEMORRHAGE [None]
  - THROMBOCYTOPENIA [None]
  - TRANSITIONAL CELL CARCINOMA [None]
  - URETERIC OBSTRUCTION [None]
